FAERS Safety Report 17350734 (Version 5)
Quarter: 2020Q1

REPORT INFORMATION
  Report Type: Report from Study
  Country: CO (occurrence: CO)
  Receive Date: 20200130
  Receipt Date: 20200323
  Transmission Date: 20200409
  Serious: Yes (Hospitalization, Disabling, Other)
  Sender: FDA-Public Use
  Company Number: CO-ACTELION-A-CH2020-201199

PATIENT
  Age: 77 Year
  Sex: Male
  Weight: 78 kg

DRUGS (2)
  1. MACITENTAN [Suspect]
     Active Substance: MACITENTAN
     Dosage: 10 MG, QD
     Route: 048
     Dates: start: 20200205, end: 202003
  2. MACITENTAN [Suspect]
     Active Substance: MACITENTAN
     Indication: PULMONARY ARTERIAL HYPERTENSION
     Dosage: 10 MG, QD
     Route: 048
     Dates: start: 20200103, end: 202001

REACTIONS (12)
  - Device occlusion [Not Recovered/Not Resolved]
  - Pain [Not Recovered/Not Resolved]
  - Mobility decreased [Not Recovered/Not Resolved]
  - Back pain [Not Recovered/Not Resolved]
  - Walking disability [Not Recovered/Not Resolved]
  - Feeling cold [Not Recovered/Not Resolved]
  - Nervous system disorder [Not Recovered/Not Resolved]
  - Surgery [Recovering/Resolving]
  - Protein total decreased [Not Recovered/Not Resolved]
  - Fluid retention [Not Recovered/Not Resolved]
  - Paracentesis [Unknown]
  - Pallor [Not Recovered/Not Resolved]

NARRATIVE: CASE EVENT DATE: 2020
